FAERS Safety Report 21649644 (Version 1)
Quarter: 2022Q4

REPORT INFORMATION
  Report Type: Spontaneous
  Country: US (occurrence: None)
  Receive Date: 20221126
  Receipt Date: 20221126
  Transmission Date: 20230113
  Serious: Yes (Hospitalization)
  Sender: FDA-Public Use
  Company Number: None

PATIENT
  Age: 32 Year
  Sex: Female

DRUGS (1)
  1. NIRMATRELVIR\RITONAVIR [Suspect]
     Active Substance: NIRMATRELVIR\RITONAVIR
     Indication: COVID-19
     Dosage: FREQUENCY : TWICE A DAY;?
     Route: 048
     Dates: start: 20221018, end: 20221019

REACTIONS (6)
  - Nausea [None]
  - Vomiting [None]
  - Drug intolerance [None]
  - Exposure during pregnancy [None]
  - Maternal drugs affecting foetus [None]
  - Maternal condition affecting foetus [None]

NARRATIVE: CASE EVENT DATE: 20221019
